FAERS Safety Report 19026146 (Version 1)
Quarter: 2021Q1

REPORT INFORMATION
  Report Type: Spontaneous
  Country: US (occurrence: US)
  Receive Date: 20210318
  Receipt Date: 20210318
  Transmission Date: 20210420
  Serious: No
  Sender: FDA-Public Use
  Company Number: US-DRREDDYS-USA/USA/21/0132608

PATIENT
  Age: 14 Year
  Sex: Male

DRUGS (2)
  1. ZENATANE [Suspect]
     Active Substance: ISOTRETINOIN
     Dosage: RMA ISSUE DATE: 18/11/2020 1:08:49 PM
     Route: 048
  2. ZENATANE [Suspect]
     Active Substance: ISOTRETINOIN
     Indication: PRODUCT USED FOR UNKNOWN INDICATION
     Dosage: RMA ISSUE DATE: 22/12/2020 6:36:20 PM, 22/1/2021 12:18:01 PM
     Route: 048

REACTIONS (1)
  - Arthralgia [Unknown]
